FAERS Safety Report 6587294-1 (Version None)
Quarter: 2010Q1

REPORT INFORMATION
  Report Type: 
  Country: None (occurrence: None)
  Receive Date: 20100217
  Receipt Date: 20090511
  Transmission Date: 20100710
  Serious: No
  Sender: FDA-Public Use
  Company Number: US-ALLERGAN-0906572US

PATIENT
  Age: 45 Year
  Sex: Female

DRUGS (4)
  1. BOTOX [Suspect]
     Indication: HYPERHIDROSIS
     Dosage: 50 UNITS, SINGLE
     Route: 023
     Dates: start: 20090428, end: 20090428
  2. BOTOX [Suspect]
     Dosage: 50 UNITS, SINGLE
     Route: 023
     Dates: start: 20090313, end: 20090313
  3. NASONEX [Concomitant]
     Indication: SEASONAL ALLERGY
     Dosage: UNK, PRN
  4. BENADRYL [Concomitant]
     Indication: SEASONAL ALLERGY
     Dosage: UNK, PRN

REACTIONS (1)
  - MUSCULAR WEAKNESS [None]
